FAERS Safety Report 9276410 (Version 2)
Quarter: 2014Q1

REPORT INFORMATION
  Report Type: Spontaneous
  Country: US (occurrence: US)
  Receive Date: 20130507
  Receipt Date: 20140102
  Transmission Date: 20141002
  Serious: Yes (Hospitalization, Other)
  Sender: FDA-Public Use
  Company Number: US-AMGEN-USASP2013031340

PATIENT
  Sex: 0

DRUGS (10)
  1. FILGRASTIM [Suspect]
     Indication: PRIMARY MEDIASTINAL LARGE B-CELL LYMPHOMA
     Dosage: UNK
     Route: 065
  2. RITUXIMAB [Suspect]
     Indication: PRIMARY MEDIASTINAL LARGE B-CELL LYMPHOMA
     Dosage: UNK
     Route: 065
  3. ETOPOSIDE [Suspect]
     Indication: PRIMARY MEDIASTINAL LARGE B-CELL LYMPHOMA
     Dosage: UNK
     Route: 065
  4. DOXORUBICIN HYDROCHLORIDE [Suspect]
     Indication: PRIMARY MEDIASTINAL LARGE B-CELL LYMPHOMA
     Dosage: UNK
     Route: 065
  5. CYCLOPHOSPHAMIDE [Suspect]
     Indication: PRIMARY MEDIASTINAL LARGE B-CELL LYMPHOMA
     Dosage: UNK
     Route: 065
  6. VINCRISTINE [Suspect]
     Indication: PRIMARY MEDIASTINAL LARGE B-CELL LYMPHOMA
     Dosage: UNK
     Route: 065
  7. PREDNISONE [Suspect]
     Indication: PRIMARY MEDIASTINAL LARGE B-CELL LYMPHOMA
     Dosage: UNK
     Route: 065
  8. METHOTREXAT                        /00113801/ [Concomitant]
     Dosage: 12 MG, 2 TIMES/WK  TWICE WEEKLY FOR 4 WEEKS, THEN ONCE WEEKLY FOR 6 WEEKS, AND THEN ONCE
  9. METHOTREXAT                        /00113801/ [Concomitant]
     Dosage: (6 MG, 2 IN 1) TWICE WEEKLY FOR 4 WEEKS, THEN ONCE WEEKLY FOR 6 WEEKS, AND THEN ONCE
  10. ALLOPURINOL [Concomitant]
     Dosage: 300 MG, UNK

REACTIONS (6)
  - Neutropenia [Unknown]
  - Thrombocytopenia [Unknown]
  - Pyrexia [Unknown]
  - Mucosal inflammation [Unknown]
  - Ileus [Unknown]
  - Sensory disturbance [Unknown]
